FAERS Safety Report 5689870-7 (Version None)
Quarter: 2008Q1

REPORT INFORMATION
  Report Type: 
  Country: None (occurrence: None)
  Receive Date: 20080331
  Receipt Date: 20080331
  Transmission Date: 20080703
  Serious: Yes (Hospitalization)
  Sender: FDA-Public Use
  Company Number: None

PATIENT
  Age: 55 Year
  Sex: Male

DRUGS (2)
  1. PREGABALIN [Suspect]
     Indication: SURGERY
     Dosage: 50MG BID PO
     Route: 048
     Dates: start: 20070918, end: 20080211
  2. CITALOPRAM HYDROBROMIDE [Suspect]
     Dosage: 60MG EVERY DAY PO
     Route: 048
     Dates: start: 20061017

REACTIONS (3)
  - GRAND MAL CONVULSION [None]
  - IDIOSYNCRATIC DRUG REACTION [None]
  - LOSS OF CONSCIOUSNESS [None]
